FAERS Safety Report 10842181 (Version 1)
Quarter: 2015Q1

REPORT INFORMATION
  Report Type: Spontaneous
  Country: US (occurrence: US)
  Receive Date: 20150220
  Receipt Date: 20150220
  Transmission Date: 20150721
  Serious: Yes (Hospitalization)
  Sender: FDA-Public Use
  Company Number: US-EMD SERONO-233806K05USA

PATIENT
  Age: 45 Year
  Sex: Female
  Weight: 51 kg

DRUGS (6)
  1. TYLENOL [Concomitant]
     Active Substance: ACETAMINOPHEN
     Indication: PREMEDICATION
     Route: 048
  2. IBUPROFEN. [Concomitant]
     Active Substance: IBUPROFEN
     Indication: PREMEDICATION
     Route: 048
  3. REBIF [Suspect]
     Active Substance: INTERFERON BETA-1A
     Indication: MULTIPLE SCLEROSIS
     Route: 058
     Dates: start: 20050720
  4. ORAL CONTRACEPTIVE NOS [Concomitant]
     Active Substance: UNSPECIFIED INGREDIENT
     Indication: CONTRACEPTION
     Route: 048
     Dates: start: 1978
  5. SYNTHROID [Concomitant]
     Active Substance: LEVOTHYROXINE SODIUM
     Indication: HYPOTHYROIDISM
     Route: 048
  6. REBIF [Suspect]
     Active Substance: INTERFERON BETA-1A
     Route: 058
     Dates: start: 20050818, end: 20050829

REACTIONS (12)
  - Nephropathy [Not Recovered/Not Resolved]
  - Malaise [Unknown]
  - Depression [Unknown]
  - Yellow skin [Not Recovered/Not Resolved]
  - Decreased appetite [Unknown]
  - Dry mouth [Unknown]
  - Asthenia [Unknown]
  - Weight decreased [Unknown]
  - Dry skin [Unknown]
  - Blood potassium decreased [Unknown]
  - Thinking abnormal [Unknown]
  - Asthenia [Unknown]

NARRATIVE: CASE EVENT DATE: 2005
